FAERS Safety Report 19382458 (Version 2)
Quarter: 2021Q3

REPORT INFORMATION
  Report Type: Spontaneous
  Country: DE (occurrence: DE)
  Receive Date: 20210607
  Receipt Date: 20210702
  Transmission Date: 20211014
  Serious: Yes (Hospitalization)
  Sender: FDA-Public Use
  Company Number: NVSC2020DE286062

PATIENT
  Age: 33 Year
  Sex: Male

DRUGS (10)
  1. TOFACITINIB [Concomitant]
     Active Substance: TOFACITINIB
     Indication: COLITIS ULCERATIVE
     Dosage: UNK
     Route: 065
  2. INFLIXIMAB [Suspect]
     Active Substance: INFLIXIMAB
     Indication: COLITIS ULCERATIVE
     Dosage: UNK
     Route: 065
  3. CYCLOSPORINE. [Suspect]
     Active Substance: CYCLOSPORINE
     Indication: COLITIS ULCERATIVE
     Dosage: 2 MG/KG, QD
     Route: 042
     Dates: start: 2017, end: 2017
  4. ADALIMUMAB [Suspect]
     Active Substance: ADALIMUMAB
     Indication: COLITIS ULCERATIVE
     Dosage: UNK
     Route: 065
  5. MERCAPTOPURINE. [Concomitant]
     Active Substance: MERCAPTOPURINE
     Indication: SUPPORTIVE CARE
  6. MERCAPTOPURINE. [Concomitant]
     Active Substance: MERCAPTOPURINE
     Indication: COLITIS ULCERATIVE
     Dosage: UNK
     Route: 065
  7. VEDOLIZUMAB [Concomitant]
     Active Substance: VEDOLIZUMAB
     Indication: COLITIS ULCERATIVE
     Dosage: UNK
     Route: 065
  8. PREDNISOLONE. [Concomitant]
     Active Substance: PREDNISOLONE
     Indication: COLITIS ULCERATIVE
     Dosage: 100 MG, QD
     Route: 042
  9. USTEKINUMAB [Concomitant]
     Active Substance: USTEKINUMAB
     Indication: COLITIS ULCERATIVE
     Dosage: 390 MG
     Route: 042
  10. AZATHIOPRINE. [Concomitant]
     Active Substance: AZATHIOPRINE
     Indication: COLITIS ULCERATIVE
     Dosage: UNK
     Route: 065
     Dates: start: 2017, end: 2017

REACTIONS (7)
  - Treatment failure [Unknown]
  - Headache [Unknown]
  - Product use in unapproved indication [Unknown]
  - Nausea [Unknown]
  - Vertigo [Unknown]
  - Drug resistance [Unknown]
  - Colitis ulcerative [Recovering/Resolving]

NARRATIVE: CASE EVENT DATE: 2017
